FAERS Safety Report 5568171-1 (Version None)
Quarter: 2007Q4

REPORT INFORMATION
  Report Type: 
  Country: None (occurrence: None)
  Receive Date: 20071218
  Receipt Date: 20071218
  Transmission Date: 20080405
  Serious: Yes (Hospitalization)
  Sender: FDA-Public Use
  Company Number: None

PATIENT
  Age: 46 Year
  Sex: Male

DRUGS (1)
  1. METOPROLOL TARTRATE [Suspect]
     Indication: ATRIAL FIBRILLATION
     Dosage: 5MG OTHER IV
     Route: 042
     Dates: start: 20070918, end: 20070918

REACTIONS (2)
  - HYPOTENSION [None]
  - RENAL TUBULAR NECROSIS [None]
